FAERS Safety Report 8014931-7 (Version None)
Quarter: 2011Q4

REPORT INFORMATION
  Report Type: 
  Country: None (occurrence: None)
  Receive Date: 20111229
  Receipt Date: 20111220
  Transmission Date: 20120403
  Serious: Yes (Hospitalization)
  Sender: FDA-Public Use
  Company Number: JP-ROCHE-773669

PATIENT
  Sex: Female

DRUGS (26)
  1. POTASSIUM GLUCONATE TAB [Concomitant]
     Dosage: DOSE FORM: PERORAL AGENT
     Route: 048
  2. MIYA BM [Concomitant]
     Dosage: DOSE FORM: PERORAL AGENT
     Route: 048
  3. ACTEMRA [Suspect]
     Route: 041
     Dates: start: 20110411, end: 20110418
  4. PREDNISOLONE [Concomitant]
     Dosage: DOSE FORM: PERORAL AGENT
     Route: 048
     Dates: start: 20110405, end: 20110411
  5. TRUSOPT [Concomitant]
     Dosage: DOSAGE UNCERTAIN
     Route: 047
  6. ACTEMRA [Suspect]
     Route: 041
     Dates: start: 20110204, end: 20110204
  7. FAMOTIDINE [Concomitant]
     Dosage: DOSE FORM: PERORAL AGENT
     Route: 048
  8. ONEALFA [Concomitant]
     Dosage: DOSE FORM: PERORAL AGENT
     Route: 048
  9. ACTEMRA [Suspect]
     Indication: JUVENILE ARTHRITIS
     Route: 041
     Dates: start: 20110121, end: 20110128
  10. PREDNISOLONE [Concomitant]
     Dosage: DOSE FORM: PERORAL AGENT
     Route: 048
     Dates: start: 20110301, end: 20110316
  11. PREDNISOLONE [Concomitant]
     Dosage: DOSE FORM: PERORAL AGENT
     Route: 048
  12. ACTEMRA [Suspect]
     Route: 041
     Dates: start: 20110210, end: 20110404
  13. DEXAMETHASONE [Concomitant]
     Route: 041
     Dates: start: 20110109, end: 20110203
  14. PREDNISOLONE [Concomitant]
     Dosage: DOSE FORM: PERORAL AGENT
     Route: 048
     Dates: start: 20110330, end: 20110404
  15. IBRUPROFEN [Concomitant]
     Dosage: DOSE FORM: PERORAL AGENT
     Route: 048
  16. FERROUS CITRATE [Concomitant]
     Dosage: DOSE FORM: PERORAL AGENT
     Route: 048
  17. DEXAMETHASONE [Concomitant]
     Route: 041
     Dates: start: 20110204, end: 20110228
  18. PREDNISOLONE [Concomitant]
     Dosage: DOSE FORM: PERORAL AGENT
     Route: 048
     Dates: start: 20110317, end: 20110325
  19. LATANOPROST [Concomitant]
     Dosage: DOSAGE UNCERTAIN
     Route: 047
  20. ACTONEL [Concomitant]
     Route: 048
  21. PREDNISOLONE [Concomitant]
     Dosage: DOSE FORM: PERORAL AGENT
     Route: 048
     Dates: start: 20110412, end: 20110418
  22. DIAMOX SRC [Concomitant]
     Dosage: DOSE FORM: PERORAL AGENT
     Route: 050
  23. CARTEOLOL HYDROCHLORIDE [Concomitant]
     Dosage: DOSAGE UNCERTAIN
     Route: 047
  24. PREDNISOLONE [Concomitant]
     Dosage: DOSE FORM: PERORAL AGENT
     Route: 048
     Dates: start: 20110326, end: 20110329
  25. POLARAMINE [Concomitant]
     Route: 048
     Dates: start: 20110216, end: 20110219
  26. DIPIVEFRIN HCL [Concomitant]
     Dosage: DOSAGE UNCERTAIN
     Route: 047

REACTIONS (2)
  - C-REACTIVE PROTEIN INCREASED [None]
  - INFUSION RELATED REACTION [None]
